FAERS Safety Report 10029249 (Version 1)
Quarter: 2014Q1

REPORT INFORMATION
  Report Type: Report from Study
  Country: BR (occurrence: BR)
  Receive Date: 20140321
  Receipt Date: 20140321
  Transmission Date: 20141002
  Serious: Yes (Death, Hospitalization)
  Sender: FDA-Public Use
  Company Number: PHHY2014BR032411

PATIENT
  Sex: Male

DRUGS (3)
  1. FORASEQ [Suspect]
     Indication: DYSPNOEA
     Dosage: 400 UG, BID
     Route: 055
     Dates: start: 2008
  2. FORADIL [Suspect]
     Indication: DYSPNOEA
     Dosage: 12 UG
     Dates: start: 2008
  3. SPIRIVA [Suspect]
     Indication: DYSPNOEA
     Dosage: 25 UG, UNK
     Dates: start: 2008

REACTIONS (2)
  - Chronic obstructive pulmonary disease [Fatal]
  - Pulmonary mass [Fatal]
